FAERS Safety Report 9833490 (Version 1)
Quarter: 2014Q1

REPORT INFORMATION
  Report Type: Spontaneous
  Country: BR (occurrence: BR)
  Receive Date: 20140122
  Receipt Date: 20140122
  Transmission Date: 20141002
  Serious: Yes (Life-Threatening, Other)
  Sender: FDA-Public Use
  Company Number: BR-ROCHE-1334965

PATIENT
  Sex: Female
  Weight: 76 kg

DRUGS (4)
  1. RIVOTRIL [Suspect]
     Indication: ANXIETY
     Dosage: 8 DROPS IN THE MORNING / 8 DROPS AT NIGHT
     Route: 065
  2. RIVOTRIL [Suspect]
     Indication: DEPRESSION
     Dosage: TWICE DAILY
     Route: 065
  3. RIVOTRIL [Suspect]
     Indication: BIPOLAR DISORDER
  4. NAPROXEN [Concomitant]
     Indication: MYALGIA
     Route: 065

REACTIONS (9)
  - Suicide attempt [Unknown]
  - Depression [Unknown]
  - Convulsion [Unknown]
  - Drug ineffective [Unknown]
  - Drug dependence [Unknown]
  - Bipolar disorder [Unknown]
  - Deformity [Unknown]
  - Nervousness [Unknown]
  - Medication error [Unknown]
